FAERS Safety Report 13537045 (Version 2)
Quarter: 2017Q3

REPORT INFORMATION
  Report Type: Spontaneous
  Country: US (occurrence: US)
  Receive Date: 20170511
  Receipt Date: 20170905
  Transmission Date: 20171127
  Serious: No
  Sender: FDA-Public Use
  Company Number: US-VERTEX PHARMACEUTICALS-2017-002523

PATIENT
  Sex: Male

DRUGS (10)
  1. VITAMIN D [Concomitant]
     Active Substance: CHOLECALCIFEROL
  2. SODIUM CHLORIDE. [Concomitant]
     Active Substance: SODIUM CHLORIDE
  3. VITAMIN E [Concomitant]
     Active Substance: .ALPHA.-TOCOPHEROL
  4. ORKAMBI [Suspect]
     Active Substance: IVACAFTOR\LUMACAFTOR
     Indication: CYSTIC FIBROSIS
     Dosage: 2 DF (100-125 MG EACH), BID
     Route: 048
     Dates: start: 201702
  5. PULMOZYME [Concomitant]
     Active Substance: DORNASE ALFA
  6. ZITHROMAX [Concomitant]
     Active Substance: AZITHROMYCIN DIHYDRATE
  7. CREON [Concomitant]
     Active Substance: PANCRELIPASE AMYLASE\PANCRELIPASE LIPASE\PANCRELIPASE PROTEASE
  8. VENTOLIN [Concomitant]
     Active Substance: ALBUTEROL SULFATE
  9. CYPROHEPTADINE. [Concomitant]
     Active Substance: CYPROHEPTADINE
  10. AQUADEKS [Concomitant]
     Active Substance: MINERALS\VITAMINS

REACTIONS (5)
  - Moaning [Unknown]
  - Decreased appetite [Unknown]
  - Nasopharyngitis [Not Recovered/Not Resolved]
  - Social avoidant behaviour [Not Recovered/Not Resolved]
  - Chest discomfort [Not Recovered/Not Resolved]

NARRATIVE: CASE EVENT DATE: 2017
